FAERS Safety Report 6876931-X (Version None)
Quarter: 2010Q3

REPORT INFORMATION
  Report Type: 
  Country: None (occurrence: None)
  Receive Date: 20100727
  Receipt Date: 20100714
  Transmission Date: 20110219
  Serious: Yes (Hospitalization)
  Sender: FDA-Public Use
  Company Number: KR-ELI_LILLY_AND_COMPANY-KR201006006809

PATIENT
  Age: 47 Year
  Sex: Male

DRUGS (7)
  1. ALIMTA [Suspect]
     Indication: LUNG NEOPLASM MALIGNANT
     Dosage: 800 MG, UNK
     Dates: start: 20100616
  2. ZIPEPROL [Concomitant]
     Indication: COUGH
     Dosage: UNK, UNKNOWN
     Route: 065
  3. CODEINE SUL TAB [Concomitant]
     Indication: COUGH
     Dosage: UNK, UNKNOWN
     Route: 065
  4. ACETAMINOPHEN [Concomitant]
     Dosage: ER
     Route: 065
  5. FOLIC ACID [Concomitant]
     Dosage: UNK, UNKNOWN
     Route: 065
  6. VITAMIN B-12 [Concomitant]
     Dosage: UNK, UNKNOWN
     Route: 065
  7. DEXAMETHASONE [Concomitant]
     Dosage: UNK, UNKNOWN
     Route: 065

REACTIONS (1)
  - PANCREATITIS ACUTE [None]
